FAERS Safety Report 16790309 (Version 1)
Quarter: 2019Q4

REPORT INFORMATION
  Report Type: Spontaneous
  Country: US (occurrence: US)
  Receive Date: 20190909
  Receipt Date: 20190909
  Transmission Date: 20200122
  Serious: No
  Sender: FDA-Public Use
  Company Number: None

PATIENT
  Age: 6 Year
  Sex: Male

DRUGS (4)
  1. ALBUTEROL 0.083% NEBS [Concomitant]
  2. RANITIDINE 15MG/ML [Concomitant]
  3. KALYDECO [Suspect]
     Active Substance: IVACAFTOR
     Indication: CYSTIC FIBROSIS
     Route: 048
     Dates: start: 20190412
  4. CETIRIZINE 1MG/ML [Concomitant]

REACTIONS (2)
  - Upper respiratory tract infection [None]
  - Streptococcal infection [None]

NARRATIVE: CASE EVENT DATE: 20190909
